FAERS Safety Report 18256165 (Version 1)
Quarter: 2020Q3

REPORT INFORMATION
  Report Type: Spontaneous
  Country: US (occurrence: US)
  Receive Date: 20200911
  Receipt Date: 20200911
  Transmission Date: 20201103
  Serious: Yes (Life-Threatening)
  Sender: FDA-Public Use
  Company Number: US-ASTRAZENECA-2020SF15675

PATIENT
  Sex: Female

DRUGS (21)
  1. FAMOTIDINE. [Suspect]
     Active Substance: FAMOTIDINE
     Route: 065
  2. BETAMETHASONE. [Concomitant]
     Active Substance: BETAMETHASONE
  3. NAPROXEN. [Concomitant]
     Active Substance: NAPROXEN
  4. FENTANYL. [Concomitant]
     Active Substance: FENTANYL
  5. PANTOPRAZOLE [Concomitant]
     Active Substance: PANTOPRAZOLE
  6. SYMBICORT [Suspect]
     Active Substance: BUDESONIDE\FORMOTEROL FUMARATE DIHYDRATE
     Dosage: UNKNOWN UNKNOWN
     Route: 055
  7. CHANTIX [Concomitant]
     Active Substance: VARENICLINE TARTRATE
  8. PANTOPRAZOLE [Concomitant]
     Active Substance: PANTOPRAZOLE
  9. LEVOTHYROXINE. [Concomitant]
     Active Substance: LEVOTHYROXINE
  10. HYDROCODONE BITARTRATE AND ACETAMINOPHEN [Concomitant]
     Active Substance: ACETAMINOPHEN\HYDROCODONE BITARTRATE
  11. METRONIDAZOLE. [Concomitant]
     Active Substance: METRONIDAZOLE
  12. METRONIDAZOLE. [Concomitant]
     Active Substance: METRONIDAZOLE
  13. NABUMETONE. [Concomitant]
     Active Substance: NABUMETONE
  14. ACETATE?BETAMETHASONE [Concomitant]
  15. IBUPROFEN. [Concomitant]
     Active Substance: IBUPROFEN
  16. LATANOPROST. [Concomitant]
     Active Substance: LATANOPROST
  17. FENTANYL. [Concomitant]
     Active Substance: FENTANYL
  18. CYCLOBENZAPRINE. [Concomitant]
     Active Substance: CYCLOBENZAPRINE
  19. SODIUM PHOSPHATE [Concomitant]
     Active Substance: SODIUM PHOSPHATE
  20. LEVOTHYROXINE. [Concomitant]
     Active Substance: LEVOTHYROXINE
  21. FAMOTIDINE. [Concomitant]
     Active Substance: FAMOTIDINE

REACTIONS (3)
  - Suicide attempt [Unknown]
  - Eating disorder [Unknown]
  - Depression [Unknown]
